FAERS Safety Report 7579009-5 (Version None)
Quarter: 2011Q2

REPORT INFORMATION
  Report Type: 
  Country: None (occurrence: None)
  Receive Date: 20110628
  Receipt Date: 20110617
  Transmission Date: 20111010
  Serious: Yes (Other)
  Sender: FDA-Public Use
  Company Number: PHHY2011US55101

PATIENT
  Sex: Male
  Weight: 99.773 kg

DRUGS (1)
  1. CLONIDINE [Suspect]

REACTIONS (3)
  - REBOUND EFFECT [None]
  - TOURETTE'S DISORDER [None]
  - TIC [None]
